FAERS Safety Report 8163708-0 (Version None)
Quarter: 2012Q1

REPORT INFORMATION
  Report Type: 
  Country: None (occurrence: None)
  Receive Date: 20120224
  Receipt Date: 20120220
  Transmission Date: 20120608
  Serious: Yes (Death, Other)
  Sender: FDA-Public Use
  Company Number: IN-PFIZER INC-2011168354

PATIENT
  Age: 14 Year
  Sex: Female

DRUGS (1)
  1. ONDANSETRON [Suspect]
     Indication: ABDOMINAL PAIN
     Dosage: 4 MG, UNK
     Route: 030

REACTIONS (4)
  - CARDIOGENIC SHOCK [None]
  - VENTRICULAR TACHYCARDIA [None]
  - VENTRICULAR FIBRILLATION [None]
  - CIRCULATORY COLLAPSE [None]
